FAERS Safety Report 21483612 (Version 1)
Quarter: 2022Q4

REPORT INFORMATION
  Report Type: Other
  Country: CZ (occurrence: CZ)
  Receive Date: 20221020
  Receipt Date: 20221020
  Transmission Date: 20230112
  Serious: Yes (Other)
  Sender: FDA-Public Use
  Company Number: None

PATIENT
  Age: 12 Year
  Sex: Female

DRUGS (2)
  1. IBUPROFEN [Suspect]
     Active Substance: IBUPROFEN
     Indication: Analgesic intervention supportive therapy
     Dosage: UNK
     Route: 065
  2. DIMETHINDENE [Suspect]
     Active Substance: DIMETHINDENE
     Indication: Antiallergic therapy
     Dosage: UNK
     Route: 065

REACTIONS (6)
  - Neuropsychiatric symptoms [Unknown]
  - Condition aggravated [Unknown]
  - Anxiety [Unknown]
  - Nightmare [Unknown]
  - Hallucination [Unknown]
  - Depression [Unknown]
